FAERS Safety Report 10286553 (Version 6)
Quarter: 2014Q3

REPORT INFORMATION
  Report Type: Spontaneous
  Country: JP (occurrence: None)
  Receive Date: 20140707
  Receipt Date: 20140729
  Transmission Date: 20150326
  Serious: Yes (Death, Hospitalization, Other)
  Sender: FDA-Public Use
  Company Number: ADR-2014-01153

PATIENT
  Age: 65 Year
  Sex: Male

DRUGS (1)
  1. GABALON [Suspect]
     Active Substance: BACLOFEN
     Indication: CEREBRAL PALSY
     Dosage: 50MCG/DAY?

REACTIONS (6)
  - Activities of daily living impaired [None]
  - Sepsis [None]
  - Urinary tract infection [None]
  - Pneumonia [None]
  - Muscle spasms [None]
  - Drug ineffective [None]
